FAERS Safety Report 4588859-9 (Version None)
Quarter: 2005Q1

REPORT INFORMATION
  Report Type: 
  Country: None (occurrence: None)
  Receive Date: 20050222
  Receipt Date: 20050105
  Transmission Date: 20050727
  Serious: Yes (Death, Hospitalization)
  Sender: FDA-Public Use
  Company Number: FR-GLAXOSMITHKLINE-B0363576A

PATIENT
  Age: 53 Year
  Sex: Female

DRUGS (5)
  1. LAMICTAL [Suspect]
     Dosage: 100MG TWICE PER DAY
     Route: 048
  2. URBANYL [Suspect]
     Dosage: 10MG TWICE PER DAY
     Route: 048
  3. OMEPRAZOLE [Suspect]
     Dosage: 20MG PER DAY
     Route: 048
  4. MUCOMYST [Suspect]
     Dosage: 200MG THREE TIMES PER DAY
     Route: 048
  5. MEDROL [Suspect]
     Dosage: 64MG PER DAY
     Route: 048
     Dates: start: 20030315

REACTIONS (3)
  - ACUTE RESPIRATORY DISTRESS SYNDROME [None]
  - DIABETES MELLITUS INADEQUATE CONTROL [None]
  - PNEUMOCYSTIS JIROVECI PNEUMONIA [None]
